FAERS Safety Report 7466013-0 (Version None)
Quarter: 2011Q2

REPORT INFORMATION
  Report Type: 
  Country: None (occurrence: None)
  Receive Date: 20110509
  Receipt Date: 20100603
  Transmission Date: 20111010
  Serious: No
  Sender: FDA-Public Use
  Company Number: US-ALEXION-A201000635

PATIENT
  Sex: Male

DRUGS (6)
  1. VITAMIN B12                        /00056201/ [Concomitant]
     Dosage: UNK
     Route: 048
  2. SOLIRIS [Suspect]
     Dosage: 900 MG, Q2WKS
     Route: 042
  3. MULTI-VITAMINS [Concomitant]
     Dosage: UNK
     Route: 048
  4. SOLIRIS [Suspect]
     Indication: PAROXYSMAL NOCTURNAL HAEMOGLOBINURIA
     Dosage: UNK
     Route: 042
     Dates: start: 20050905
  5. FOLIC ACID [Concomitant]
     Dosage: UNK
     Route: 048
  6. COUMADIN [Concomitant]
     Dosage: UNK
     Route: 048

REACTIONS (1)
  - NASOPHARYNGITIS [None]
